FAERS Safety Report 6965524-1 (Version None)
Quarter: 2010Q3

REPORT INFORMATION
  Report Type: 
  Country: None (occurrence: None)
  Receive Date: 20100903
  Receipt Date: 20100903
  Transmission Date: 20110219
  Serious: Yes (Hospitalization)
  Sender: FDA-Public Use
  Company Number: US-MPIJNJ-2006_00661

PATIENT
  Age: 77 Year
  Sex: Male

DRUGS (5)
  1. VELCADE [Suspect]
     Indication: B-CELL LYMPHOMA
     Dosage: 1.30 MG/M2, UNK
     Route: 041
     Dates: start: 20060209
  2. CYCLOPHOSPHAMIDE [Suspect]
     Indication: B-CELL LYMPHOMA
     Dates: start: 20060209
  3. DOXORUBICIN HCL [Suspect]
     Indication: B-CELL LYMPHOMA
     Dates: start: 20060209
  4. VINCRISTINE [Suspect]
     Indication: B-CELL LYMPHOMA
     Dates: start: 20060209
  5. PREDNISONE [Suspect]
     Indication: B-CELL LYMPHOMA
     Dates: start: 20060209

REACTIONS (2)
  - MUCOSAL INFLAMMATION [None]
  - PYREXIA [None]
